FAERS Safety Report 11595363 (Version 3)
Quarter: 2016Q1

REPORT INFORMATION
  Report Type: Report from Study
  Country: US (occurrence: US)
  Receive Date: 20151006
  Receipt Date: 20160226
  Transmission Date: 20160525
  Serious: No
  Sender: FDA-Public Use
  Company Number: US-AMGEN-USASP2015102248

PATIENT
  Age: 49 Year
  Sex: Female

DRUGS (1)
  1. ENBREL [Suspect]
     Active Substance: ETANERCEPT
     Indication: PSORIATIC ARTHROPATHY
     Dosage: UNK, ONCE A WEEK
     Route: 065
     Dates: start: 2015

REACTIONS (6)
  - Musculoskeletal pain [Unknown]
  - Device malfunction [Unknown]
  - Alopecia [Unknown]
  - Drug ineffective [Unknown]
  - Grip strength decreased [Unknown]
  - Respiratory tract congestion [Unknown]

NARRATIVE: CASE EVENT DATE: 201509
